FAERS Safety Report 9163816 (Version 2)
Quarter: 2013Q1

REPORT INFORMATION
  Report Type: Spontaneous
  Country: IN (occurrence: IN)
  Receive Date: 20130314
  Receipt Date: 20130326
  Transmission Date: 20140127
  Serious: Yes (Death, Hospitalization)
  Sender: FDA-Public Use
  Company Number: IN-NICOBRDEVP-2013-04295

PATIENT
  Age: 11 Month
  Sex: Male

DRUGS (2)
  1. CARVEDILOL (UNKNOWN) [Suspect]
     Indication: CONGESTIVE CARDIOMYOPATHY
     Dosage: UNK, DAILY
     Route: 048
  2. IMMUNOGLOBULINS [Concomitant]
     Indication: PRODUCT USED FOR UNKNOWN INDICATION
     Dosage: UNK, UNKNOWN
     Route: 065

REACTIONS (2)
  - Cardiac failure [Fatal]
  - Ejection fraction decreased [Fatal]
